FAERS Safety Report 25353715 (Version 2)
Quarter: 2025Q2

REPORT INFORMATION
  Report Type: Spontaneous
  Country: US (occurrence: US)
  Receive Date: 20250523
  Receipt Date: 20250605
  Transmission Date: 20250717
  Serious: Yes (Other)
  Sender: GUERBET
  Company Number: US-GUERBET / LLC-US-20250097

PATIENT
  Age: 46 Year
  Sex: Female
  Weight: 57.6 kg

DRUGS (1)
  1. ELUCIREM [Suspect]
     Active Substance: GADOPICLENOL
     Indication: Magnetic resonance imaging head
     Route: 042
     Dates: start: 20250410, end: 20250410

REACTIONS (4)
  - Dyspnoea [Unknown]
  - Rash erythematous [Recovered/Resolved]
  - Flushing [Unknown]
  - Anxiety [Unknown]

NARRATIVE: CASE EVENT DATE: 20250410
